FAERS Safety Report 24295424 (Version 1)
Quarter: 2024Q3

REPORT INFORMATION
  Report Type: Other
  Country: US (occurrence: US)
  Receive Date: 20240908
  Receipt Date: 20240908
  Transmission Date: 20241017
  Serious: Yes (Death, Other)
  Sender: AVEVA
  Company Number: US-AVEVA-000733

PATIENT
  Age: 45 Year
  Sex: Male

DRUGS (1)
  1. FENTANYL [Suspect]
     Active Substance: FENTANYL\FENTANYL CITRATE
     Indication: Product used for unknown indication
     Dosage: UNK
     Route: 065

REACTIONS (2)
  - CHANTER syndrome [Fatal]
  - Toxicity to various agents [Fatal]
